FAERS Safety Report 5541637-6 (Version None)
Quarter: 2007Q4

REPORT INFORMATION
  Report Type: 
  Country: None (occurrence: None)
  Receive Date: 20071210
  Receipt Date: 20071206
  Transmission Date: 20080405
  Serious: Yes (Other)
  Sender: FDA-Public Use
  Company Number: A0697655A

PATIENT
  Age: 22 Year
  Sex: Male
  Weight: 118 kg

DRUGS (2)
  1. NICODERM CQ [Suspect]
     Indication: SMOKING CESSATION THERAPY
     Route: 062
     Dates: start: 20071012, end: 20071019
  2. EQUATE NTS 14MG [Suspect]
     Indication: SMOKING CESSATION THERAPY
     Route: 062
     Dates: start: 20071020, end: 20071020

REACTIONS (5)
  - BLOOD PRESSURE INCREASED [None]
  - OVERDOSE [None]
  - TYPE 1 DIABETES MELLITUS [None]
  - VISION BLURRED [None]
  - VISUAL ACUITY REDUCED [None]
